FAERS Safety Report 13515745 (Version 1)
Quarter: 2017Q2

REPORT INFORMATION
  Report Type: Spontaneous
  Country: US (occurrence: US)
  Receive Date: 20170504
  Receipt Date: 20170504
  Transmission Date: 20170830
  Serious: Yes (Other)
  Sender: FDA-Public Use
  Company Number: PHHY2017US063315

PATIENT
  Age: 45 Year
  Sex: Female

DRUGS (1)
  1. METHYLPREDNISOLONE. [Suspect]
     Active Substance: METHYLPREDNISOLONE
     Indication: MULTIPLE SCLEROSIS
     Dosage: 1 G, QD
     Route: 042

REACTIONS (4)
  - Condition aggravated [Unknown]
  - Quadriparesis [Unknown]
  - Diplopia [Unknown]
  - Sphincter of Oddi dysfunction [Unknown]
